FAERS Safety Report 4354433-2 (Version None)
Quarter: 2004Q2

REPORT INFORMATION
  Report Type: 
  Country: None (occurrence: None)
  Receive Date: 20040503
  Receipt Date: 20040420
  Transmission Date: 20050107
  Serious: Yes (Death)
  Sender: FDA-Public Use
  Company Number: 2004010492

PATIENT
  Age: 87 Year
  Sex: Female

DRUGS (1)
  1. ATORVASTATIN (ATORVASTATIN) [Suspect]
     Indication: DYSLIPIDAEMIA
     Dosage: 80 MG (DAILY), ORAL
     Route: 048
     Dates: start: 19991101

REACTIONS (2)
  - FEELING ABNORMAL [None]
  - SYNCOPE [None]
